FAERS Safety Report 8077352-7 (Version None)
Quarter: 2012Q1

REPORT INFORMATION
  Report Type: 
  Country: None (occurrence: None)
  Receive Date: 20120127
  Receipt Date: 20120123
  Transmission Date: 20120608
  Serious: No
  Sender: FDA-Public Use
  Company Number: US-BAYER-2012-007565

PATIENT
  Sex: Female

DRUGS (1)
  1. CLIMARA [Suspect]
     Indication: OESTROGEN REPLACEMENT THERAPY
     Dosage: 0.038 MG, QD
     Route: 062

REACTIONS (2)
  - SKIN LESION [None]
  - BLISTER [None]
